FAERS Safety Report 24386104 (Version 1)
Quarter: 2024Q4

REPORT INFORMATION
  Report Type: Spontaneous
  Country: US (occurrence: US)
  Receive Date: 20241001
  Receipt Date: 20241001
  Transmission Date: 20250114
  Serious: No
  Sender: INTERSECT ENT
  Company Number: US-Intersect Ent, Inc.-2161875

PATIENT
  Age: 74 Year
  Sex: Female
  Weight: 68.182 kg

DRUGS (1)
  1. SINUVA [Suspect]
     Active Substance: MOMETASONE FUROATE
     Indication: Chronic rhinosinusitis with nasal polyps
     Dates: start: 20240621, end: 20240702

REACTIONS (1)
  - Cellulitis [Recovered/Resolved]

NARRATIVE: CASE EVENT DATE: 20240702
